FAERS Safety Report 5240638-5 (Version None)
Quarter: 2007Q1

REPORT INFORMATION
  Report Type: 
  Country: None (occurrence: None)
  Receive Date: 20070219
  Receipt Date: 20070209
  Transmission Date: 20070707
  Serious: Yes (Life-Threatening)
  Sender: FDA-Public Use
  Company Number: JP-MERCK-0612USA03981

PATIENT
  Age: 30 Year
  Sex: Female

DRUGS (10)
  1. PEPCID RPD [Suspect]
     Indication: SYSTEMIC LUPUS ERYTHEMATOSUS
     Route: 048
     Dates: start: 19980101, end: 20061218
  2. BAKTAR [Suspect]
     Indication: PNEUMONIA
     Route: 048
     Dates: start: 20061208, end: 20061214
  3. BIAPENEM [Concomitant]
     Indication: PNEUMONIA
     Route: 042
     Dates: start: 20061208, end: 20061218
  4. DALACIN S [Concomitant]
     Indication: PNEUMONIA
     Route: 042
     Dates: start: 20061208, end: 20061218
  5. CLARITHROMYCIN [Concomitant]
     Indication: PNEUMONIA
     Route: 048
     Dates: start: 20061208, end: 20061218
  6. MICAFUNGIN SODIUM [Concomitant]
     Indication: PNEUMONIA
     Route: 042
     Dates: start: 20061208, end: 20061218
  7. PREDONINE [Concomitant]
     Indication: SYSTEMIC LUPUS ERYTHEMATOSUS
     Route: 048
     Dates: start: 19980101
  8. PREDONINE [Concomitant]
     Indication: LUPUS NEPHRITIS
     Route: 048
     Dates: start: 19980101
  9. BERAPROST SODIUM [Concomitant]
     Indication: SYSTEMIC LUPUS ERYTHEMATOSUS
     Route: 048
     Dates: start: 19980101, end: 20061218
  10. ONEALFA [Concomitant]
     Indication: SYSTEMIC LUPUS ERYTHEMATOSUS
     Route: 048
     Dates: start: 19980101, end: 20061218

REACTIONS (4)
  - DIALYSIS [None]
  - NEUTROPHIL COUNT DECREASED [None]
  - PNEUMONIA [None]
  - WHITE BLOOD CELL COUNT DECREASED [None]
